FAERS Safety Report 25188127 (Version 1)
Quarter: 2025Q2

REPORT INFORMATION
  Report Type: Spontaneous
  Country: CA (occurrence: CA)
  Receive Date: 20250411
  Receipt Date: 20250411
  Transmission Date: 20250716
  Serious: Yes (Other)
  Sender: TEVA
  Company Number: CA-TEVA-VS-3320482

PATIENT

DRUGS (8)
  1. ACETAMINOPHEN [Suspect]
     Active Substance: ACETAMINOPHEN
     Indication: Sickle cell disease
     Route: 064
  2. BETAMETHASONE [Concomitant]
     Active Substance: BETAMETHASONE
     Indication: Maternal therapy to enhance foetal lung maturity
     Route: 064
  3. ERYTHROPOIETIN [Suspect]
     Active Substance: ERYTHROPOIETIN
     Indication: Prophylaxis
     Route: 064
  4. ECULIZUMAB [Concomitant]
     Active Substance: ECULIZUMAB
     Indication: Prophylaxis
     Route: 064
  5. METHYLPREDNISOLONE [Concomitant]
     Active Substance: METHYLPREDNISOLONE
     Indication: Prophylaxis
     Route: 064
  6. HYDROMORPHONE [Suspect]
     Active Substance: HYDROMORPHONE
     Indication: Sickle cell disease
     Route: 064
  7. PREDNISONE [Suspect]
     Active Substance: PREDNISONE
     Indication: Jaundice acholuric
     Route: 064
  8. PREDNISONE [Suspect]
     Active Substance: PREDNISONE
     Indication: Jaundice acholuric
     Route: 065

REACTIONS (3)
  - Low birth weight baby [Unknown]
  - Premature baby [Unknown]
  - Foetal exposure during pregnancy [Unknown]
